FAERS Safety Report 20774859 (Version 1)
Quarter: 2022Q2

REPORT INFORMATION
  Report Type: Spontaneous
  Country: US (occurrence: None)
  Receive Date: 20220501
  Receipt Date: 20220501
  Transmission Date: 20220720
  Serious: Yes (Life-Threatening, Hospitalization)
  Sender: FDA-Public Use
  Company Number: None

PATIENT
  Age: 78 Year
  Sex: Female

DRUGS (12)
  1. DICLOFENAC [Suspect]
     Active Substance: DICLOFENAC
     Indication: Product used for unknown indication
     Dosage: FREQUENCY : AS NEEDED;?
     Route: 048
     Dates: start: 20211110, end: 20211110
  2. Advair Diskus 250/50 mcg/dose [Concomitant]
  3. aspirin 81mg tablet [Concomitant]
  4. bupropion 150mg ER tablet [Concomitant]
  5. vitamin d3 1000 IU tablet [Concomitant]
  6. ESOMEPRAZOLE STRONTIUM [Concomitant]
     Active Substance: ESOMEPRAZOLE STRONTIUM
  7. ipratropium-albuterol 0.5-2.5 inhalation solution [Concomitant]
  8. LOSARTAN [Concomitant]
     Active Substance: LOSARTAN
  9. hydrochlorothiazide 25mg tablet [Concomitant]
  10. vitamin k2 tablet [Concomitant]
  11. metoprolol succinate 100mg tablet [Concomitant]
  12. oxycodone-acetaminophen 5-325mg tablet [Concomitant]

REACTIONS (3)
  - Urticaria [None]
  - Swelling [None]
  - Angioedema [None]

NARRATIVE: CASE EVENT DATE: 20211110
